FAERS Safety Report 16799300 (Version 3)
Quarter: 2019Q3

REPORT INFORMATION
  Report Type: Spontaneous
  Country: US (occurrence: US)
  Receive Date: 20190912
  Receipt Date: 20190919
  Transmission Date: 20191005
  Serious: Yes (Other)
  Sender: FDA-Public Use
  Company Number: US-PFIZER INC-2019394292

PATIENT
  Age: 60 Year
  Sex: Male
  Weight: 127.1 kg

DRUGS (1)
  1. PREGABALIN. [Suspect]
     Active Substance: PREGABALIN
     Indication: DIABETIC NEUROPATHY
     Dosage: 150 MG, 2X/DAY
     Route: 048
     Dates: start: 2019

REACTIONS (3)
  - Gait inability [Unknown]
  - Drug ineffective [Not Recovered/Not Resolved]
  - General physical condition decreased [Unknown]

NARRATIVE: CASE EVENT DATE: 2019
